FAERS Safety Report 5316522-5 (Version None)
Quarter: 2007Q2

REPORT INFORMATION
  Report Type: 
  Country: None (occurrence: None)
  Receive Date: 20070504
  Receipt Date: 20070426
  Transmission Date: 20071010
  Serious: Yes (Hospitalization, Other)
  Sender: FDA-Public Use
  Company Number: FR-ABBOTT-07P-056-0366276-00

PATIENT
  Age: 14 Year
  Sex: Male

DRUGS (1)
  1. NORVIR [Suspect]
     Indication: HIV INFECTION
     Route: 048

REACTIONS (6)
  - ANXIETY [None]
  - ASPHYXIA [None]
  - DYSPHAGIA [None]
  - FOREIGN BODY TRAUMA [None]
  - INJURY ASPHYXIATION [None]
  - STRESS [None]
